FAERS Safety Report 23863239 (Version 2)
Quarter: 2024Q2

REPORT INFORMATION
  Report Type: Spontaneous
  Country: JP (occurrence: JP)
  Receive Date: 20240516
  Receipt Date: 20240524
  Transmission Date: 20240716
  Serious: Yes (Other)
  Sender: FDA-Public Use
  Company Number: JP-ORG100014127-2024000131

PATIENT
  Sex: Female

DRUGS (6)
  1. METYRAPONE [Suspect]
     Active Substance: METYRAPONE
     Indication: Cushing^s syndrome
     Dosage: START DATE: OCTOBER(OCTOBER X-3 YEAR)
  2. METYRAPONE [Suspect]
     Active Substance: METYRAPONE
     Indication: Cushing^s syndrome
  3. METYRAPONE [Suspect]
     Active Substance: METYRAPONE
     Indication: Cushing^s syndrome
  4. OSILODROSTAT [Concomitant]
     Active Substance: OSILODROSTAT
     Indication: Hyperadrenocorticism
  5. OSILODROSTAT [Concomitant]
     Active Substance: OSILODROSTAT
     Indication: Hyperadrenocorticism
  6. HYDROCORTISONE [Concomitant]
     Active Substance: HYDROCORTISONE
     Indication: Hyperadrenocorticism

REACTIONS (1)
  - Malignant neoplasm progression [Unknown]
